FAERS Safety Report 5403642-X (Version None)
Quarter: 2007Q3

REPORT INFORMATION
  Report Type: 
  Country: None (occurrence: None)
  Receive Date: 20070802
  Receipt Date: 20070724
  Transmission Date: 20080115
  Serious: Yes (Hospitalization)
  Sender: FDA-Public Use
  Company Number: PHNR2007AU01399

PATIENT
  Age: 65 Year
  Sex: Female

DRUGS (1)
  1. CLOZARIL [Suspect]
     Dosage: 12 - 700MG DAILY
     Route: 048
     Dates: start: 19960822

REACTIONS (3)
  - CONVULSION [None]
  - LOWER RESPIRATORY TRACT INFECTION [None]
  - PYREXIA [None]
